FAERS Safety Report 13328245 (Version 1)
Quarter: 2017Q1

REPORT INFORMATION
  Report Type: Spontaneous
  Country: US (occurrence: US)
  Receive Date: 20170310
  Receipt Date: 20170310
  Transmission Date: 20170428
  Serious: Yes (Hospitalization, Other)
  Sender: FDA-Public Use
  Company Number: None

PATIENT
  Age: 18 Year
  Sex: Male
  Weight: 52.65 kg

DRUGS (1)
  1. HALDOL [Suspect]
     Active Substance: HALOPERIDOL

REACTIONS (7)
  - Hypertension [None]
  - Hyperhidrosis [None]
  - Rhabdomyolysis [None]
  - Tachycardia [None]
  - Joint stiffness [None]
  - Neuroleptic malignant syndrome [None]
  - Dysphagia [None]

NARRATIVE: CASE EVENT DATE: 20170109
